FAERS Safety Report 5168842-5 (Version None)
Quarter: 2006Q4

REPORT INFORMATION
  Report Type: 
  Country: None (occurrence: None)
  Receive Date: 20061211
  Receipt Date: 20061127
  Transmission Date: 20070319
  Serious: Yes (Hospitalization)
  Sender: FDA-Public Use
  Company Number: JP-BRISTOL-MYERS SQUIBB COMPANY-13593777

PATIENT
  Age: 55 Year
  Sex: Male

DRUGS (5)
  1. REYATAZ [Suspect]
     Indication: HIV INFECTION
     Route: 048
     Dates: start: 20050929
  2. NORVIR [Suspect]
     Indication: HIV INFECTION
     Route: 048
     Dates: start: 20050929
  3. EPZICOM [Concomitant]
     Route: 048
     Dates: start: 20050929
  4. ZESTRIL [Concomitant]
     Route: 048
     Dates: start: 20051020, end: 20051205
  5. LENDORMIN [Concomitant]
     Route: 048
     Dates: start: 20041209

REACTIONS (2)
  - CEREBRAL INFARCTION [None]
  - HYPERLIPIDAEMIA [None]
